FAERS Safety Report 4967940-6 (Version None)
Quarter: 2006Q2

REPORT INFORMATION
  Report Type: 
  Country: None (occurrence: None)
  Receive Date: 20060410
  Receipt Date: 20060329
  Transmission Date: 20061013
  Serious: Yes (Other)
  Sender: FDA-Public Use
  Company Number: PT-BRISTOL-MYERS SQUIBB COMPANY-13330253

PATIENT
  Age: 17 Year
  Sex: Female
  Weight: 50 kg

DRUGS (2)
  1. PROCEF TABS 500 MG [Suspect]
     Route: 048
     Dates: start: 20060223, end: 20060304
  2. LEVOCETIRIZINE [Suspect]
     Route: 048
     Dates: start: 20060223, end: 20060304

REACTIONS (3)
  - ACNE [None]
  - PRURITUS [None]
  - RASH GENERALISED [None]
